FAERS Safety Report 8438884-2 (Version None)
Quarter: 2012Q2

REPORT INFORMATION
  Report Type: 
  Country: None (occurrence: None)
  Receive Date: 20120615
  Receipt Date: 20120605
  Transmission Date: 20120825
  Serious: Yes (Hospitalization)
  Sender: FDA-Public Use
  Company Number: JP-JNJFOC-20120516287

PATIENT
  Sex: Female
  Weight: 40 kg

DRUGS (8)
  1. REMICADE [Suspect]
     Indication: RHEUMATOID ARTHRITIS
     Route: 042
     Dates: start: 20100917
  2. REMICADE [Suspect]
     Route: 042
     Dates: start: 20100611
  3. RHEUMATREX [Suspect]
     Indication: RHEUMATOID ARTHRITIS
     Route: 048
     Dates: start: 20100601
  4. PREDNISOLONE [Suspect]
     Indication: PRODUCT USED FOR UNKNOWN INDICATION
     Route: 048
     Dates: start: 20100601
  5. REMICADE [Suspect]
     Route: 042
     Dates: start: 20101105
  6. REMICADE [Suspect]
     Route: 042
     Dates: start: 20100723
  7. REMICADE [Suspect]
     Route: 042
     Dates: start: 20110401
  8. REMICADE [Suspect]
     Dosage: 13TH INFUSION
     Route: 042
     Dates: start: 20120302

REACTIONS (3)
  - PLEURAL EFFUSION [None]
  - ALTERED STATE OF CONSCIOUSNESS [None]
  - PERITONEAL TUBERCULOSIS [None]
